FAERS Safety Report 4913561-0 (Version None)
Quarter: 2006Q1

REPORT INFORMATION
  Report Type: 
  Country: None (occurrence: None)
  Receive Date: 20060216
  Receipt Date: 20060210
  Transmission Date: 20060701
  Serious: Yes (Other)
  Sender: FDA-Public Use
  Company Number: 2006UW02306

PATIENT
  Age: 482 Month
  Sex: Female
  Weight: 55 kg

DRUGS (2)
  1. IRESSA [Suspect]
     Indication: BREAST CANCER
     Route: 048
     Dates: start: 20041018, end: 20050506
  2. ARIMIDEX [Suspect]
     Indication: BREAST CANCER
     Route: 048
     Dates: start: 20041018, end: 20050422

REACTIONS (4)
  - OEDEMA PERIPHERAL [None]
  - PAIN IN EXTREMITY [None]
  - SKIN TOXICITY [None]
  - SKIN ULCER [None]
